FAERS Safety Report 5851566-6 (Version None)
Quarter: 2008Q3

REPORT INFORMATION
  Report Type: 
  Country: None (occurrence: None)
  Receive Date: 20080820
  Receipt Date: 20080118
  Transmission Date: 20090109
  Serious: No
  Sender: FDA-Public Use
  Company Number: US-PFIZER INC-2007068988

PATIENT
  Sex: Male
  Weight: 97.1 kg

DRUGS (3)
  1. CHANTIX [Suspect]
     Indication: SMOKING CESSATION THERAPY
     Route: 048
     Dates: start: 20070220, end: 20070620
  2. PRILOSEC [Concomitant]
     Route: 048
  3. ZOCOR [Concomitant]
     Route: 048

REACTIONS (1)
  - NO ADVERSE EVENT [None]
